FAERS Safety Report 14631067 (Version 1)
Quarter: 2018Q1

REPORT INFORMATION
  Report Type: Spontaneous
  Country: US (occurrence: US)
  Receive Date: 20180313
  Receipt Date: 20180313
  Transmission Date: 20180509
  Serious: No
  Sender: FDA-Public Use
  Company Number: US-TEVA-780778ACC

PATIENT
  Age: 2 Year
  Sex: Male

DRUGS (1)
  1. AMOXICILLIN. [Suspect]
     Active Substance: AMOXICILLIN
     Indication: PRODUCT USED FOR UNKNOWN INDICATION
     Route: 065
     Dates: start: 201706

REACTIONS (5)
  - Impulsive behaviour [Unknown]
  - Abnormal behaviour [Unknown]
  - Anger [Unknown]
  - Product formulation issue [Unknown]
  - Aggression [Unknown]

NARRATIVE: CASE EVENT DATE: 201706
